APPROVED DRUG PRODUCT: DICYCLOMINE HYDROCHLORIDE
Active Ingredient: DICYCLOMINE HYDROCHLORIDE
Strength: 10MG/5ML
Dosage Form/Route: SYRUP;ORAL
Application: A040169 | Product #001 | TE Code: AA
Applicant: PH HEALTH LTD
Approved: Mar 24, 2005 | RLD: No | RS: Yes | Type: RX